FAERS Safety Report 4761852-9 (Version None)
Quarter: 2005Q3

REPORT INFORMATION
  Report Type: 
  Country: None (occurrence: None)
  Receive Date: 20050906
  Receipt Date: 20050512
  Transmission Date: 20060218
  Serious: Yes (Hospitalization)
  Sender: FDA-Public Use
  Company Number: AT-ROCHE-404673

PATIENT
  Age: 51 Year
  Sex: Female
  Weight: 58 kg

DRUGS (7)
  1. RIBAVIRIN [Suspect]
     Route: 048
     Dates: start: 20040701
  2. PEG-INTERFERON ALFA 2A (RO 25-8310) [Suspect]
     Route: 058
     Dates: start: 20040701
  3. FAVISTAN [Concomitant]
     Dates: start: 20050401
  4. SELOKEN RETARD [Concomitant]
     Dates: start: 20041104
  5. EUTHYROX [Concomitant]
     Dosage: TDD: 04 NOV TO 06 NOV 2004: 75 MCG, 07 NOV TO 15 DEC 2004: 150 MCG, 16 DEC 2004 TO 13 JAN 2005: 125+
     Dates: start: 20041104, end: 20050113
  6. INDERAL [Concomitant]
     Dates: start: 20041005, end: 20041103
  7. PSYCHOPAX [Concomitant]
     Dates: start: 20041021

REACTIONS (1)
  - SUDDEN HEARING LOSS [None]
